FAERS Safety Report 13052674 (Version 1)
Quarter: 2016Q4

REPORT INFORMATION
  Report Type: Spontaneous
  Country: US (occurrence: US)
  Receive Date: 20161221
  Receipt Date: 20161221
  Transmission Date: 20170207
  Serious: No
  Sender: FDA-Public Use
  Company Number: US-ALLERGAN-1671665US

PATIENT
  Sex: Male

DRUGS (3)
  1. BYSTOLIC [Suspect]
     Active Substance: NEBIVOLOL HYDROCHLORIDE
     Indication: HYPERTENSION
     Dosage: 10 MG, UNK
     Route: 065
     Dates: start: 201609
  2. TAMSULOSIN [Concomitant]
     Active Substance: TAMSULOSIN
     Indication: PROSTATIC DISORDER
  3. FLOMAX [Concomitant]
     Active Substance: TAMSULOSIN HYDROCHLORIDE
     Indication: PROSTATIC DISORDER

REACTIONS (8)
  - Anxiety [Unknown]
  - Somnolence [Recovering/Resolving]
  - Nightmare [Recovering/Resolving]
  - Abnormal dreams [Unknown]
  - Insomnia [Unknown]
  - Chest discomfort [Unknown]
  - Feeling abnormal [Unknown]
  - Nervousness [Unknown]
